FAERS Safety Report 6222930-0 (Version None)
Quarter: 2009Q2

REPORT INFORMATION
  Report Type: 
  Country: None (occurrence: None)
  Receive Date: 20090611
  Receipt Date: 20090603
  Transmission Date: 20091009
  Serious: Yes (Hospitalization)
  Sender: FDA-Public Use
  Company Number: AU-AVENTIS-200915667GDDC

PATIENT
  Age: 43 Year
  Sex: Male

DRUGS (4)
  1. ARAVA [Suspect]
     Indication: RHEUMATOID ARTHRITIS
     Dates: start: 20090316
  2. METHOTREXATE [Suspect]
     Dosage: DOSE: UNK
  3. FOLIC ACID [Suspect]
     Dosage: DOSE: UNK
  4. NAPROSYN [Suspect]
     Dosage: DOSE: UNK

REACTIONS (1)
  - CHOLECYSTITIS INFECTIVE [None]
